FAERS Safety Report 19126547 (Version 2)
Quarter: 2021Q2

REPORT INFORMATION
  Report Type: Report from Study
  Country: US (occurrence: US)
  Receive Date: 20210412
  Receipt Date: 20210419
  Transmission Date: 20210717
  Serious: No
  Sender: FDA-Public Use
  Company Number: NVSC2021US082490

PATIENT
  Sex: Female

DRUGS (2)
  1. MORPHINE SULPHATE [Suspect]
     Active Substance: MORPHINE SULFATE
     Indication: PRODUCT USED FOR UNKNOWN INDICATION
     Dosage: UNK UNK, UNKNOWN
     Route: 065
  2. ENTRESTO [Suspect]
     Active Substance: SACUBITRIL\VALSARTAN
     Indication: CARDIOMYOPATHY
     Dosage: 100 MG (49/51 MG), BID (1 TAB IN THE MORNING AND 1 AND 1/2 TABLETS IN THE EVENING)
     Route: 048

REACTIONS (2)
  - Wrong technique in product usage process [Unknown]
  - Hypersensitivity [Unknown]
